FAERS Safety Report 8409545 (Version 2)
Quarter: 2012Q4

REPORT INFORMATION
  Report Type: Spontaneous
  Country: US (occurrence: None)
  Receive Date: 20111227
  Receipt Date: 20120426
  Transmission Date: 20130627
  Serious: No
  Sender: FDA-Public Use
  Company Number: PHEH2011US03190

PATIENT
  Age: 53 Year
  Sex: Female

DRUGS (1)
  1. GILENYA [Suspect]
     Indication: RELAPSING-REMITTING MULTIPLE SCLEROSIS
     Dosage: 0.5MG, QD, ORAL
     Route: 048
     Dates: start: 20110824

REACTIONS (5)
  - Blepharospasm [None]
  - Muscle contractions involuntary [None]
  - Herpes zoster [None]
  - Headache [None]
  - White blood cell count increased [None]
